FAERS Safety Report 24670054 (Version 1)
Quarter: 2024Q4

REPORT INFORMATION
  Report Type: Spontaneous
  Country: DE (occurrence: DE)
  Receive Date: 20241127
  Receipt Date: 20241127
  Transmission Date: 20250115
  Serious: Yes (Other)
  Sender: ALVOGEN
  Company Number: DE-THERAMEX-2024003130

PATIENT
  Age: 85 Year
  Sex: Female

DRUGS (1)
  1. TERIPARATIDE [Suspect]
     Active Substance: TERIPARATIDE
     Indication: Osteoporosis
     Dosage: ONE INJECTION PER DAY?STRENGTH: 20 MICROGRAM/80 MICROLITER
     Route: 058
     Dates: start: 20241015, end: 20241109

REACTIONS (4)
  - Arrhythmia [Recovered/Resolved]
  - Fatigue [Recovered/Resolved]
  - Anxiety disorder [Recovered/Resolved]
  - Dizziness [Recovered/Resolved]

NARRATIVE: CASE EVENT DATE: 20241101
